FAERS Safety Report 7714955-0 (Version None)
Quarter: 2011Q3

REPORT INFORMATION
  Report Type: 
  Country: None (occurrence: None)
  Receive Date: 20110829
  Receipt Date: 20110823
  Transmission Date: 20111222
  Serious: Yes (Hospitalization)
  Sender: FDA-Public Use
  Company Number: US-SANOFI-AVENTIS-2011SA054796

PATIENT
  Age: 85 Year
  Sex: Male
  Weight: 90.7 kg

DRUGS (7)
  1. COLCHICINE [Suspect]
     Route: 048
     Dates: start: 20101223
  2. DILTIAZEM [Concomitant]
     Indication: HYPERTENSION
  3. ATORVASTATIN [Suspect]
     Route: 048
  4. LASIX [Suspect]
     Route: 065
  5. COLCHICINE [Suspect]
     Indication: GOUT
     Route: 048
     Dates: start: 20100201
  6. LASIX [Suspect]
     Route: 065
  7. INSULIN [Concomitant]

REACTIONS (1)
  - MYOPATHY [None]
